FAERS Safety Report 20379987 (Version 1)
Quarter: 2022Q1

REPORT INFORMATION
  Report Type: Spontaneous
  Country: GB (occurrence: GB)
  Receive Date: 20220126
  Receipt Date: 20220126
  Transmission Date: 20220423
  Serious: Yes (Other)
  Sender: FDA-Public Use
  Company Number: GB-ALLERGAN-2202834US

PATIENT
  Sex: Male
  Weight: 101 kg

DRUGS (6)
  1. MEMANTINE [Suspect]
     Active Substance: MEMANTINE
     Indication: Product used for unknown indication
     Dosage: 10 MG, QD
     Dates: start: 20210810
  2. BETAMETHASONE VALERATE [Concomitant]
     Active Substance: BETAMETHASONE VALERATE
     Indication: Stasis dermatitis
     Dosage: 1 DF, QD
     Route: 003
     Dates: start: 20210701
  3. CETRABEN [LIGHT LIQUID PARAFFIN;WHITE SOFT PARAFFIN] [Concomitant]
     Indication: Stasis dermatitis
     Dosage: 1 DF, QD
     Route: 003
     Dates: start: 20210701
  4. DONEPEZIL [Concomitant]
     Active Substance: DONEPEZIL
     Dosage: 1 DF, QD
     Dates: start: 20210701
  5. MIRTAZAPINE [Concomitant]
     Active Substance: MIRTAZAPINE
     Dosage: 1 DF, QHS
     Dates: start: 20210701
  6. PREGABALIN [Concomitant]
     Active Substance: PREGABALIN
     Dosage: 2 DF, QD
     Dates: start: 20210701

REACTIONS (1)
  - Muscle spasms [Recovered/Resolved]

NARRATIVE: CASE EVENT DATE: 20210810
